FAERS Safety Report 8292394-4 (Version None)
Quarter: 2012Q2

REPORT INFORMATION
  Report Type: 
  Country: None (occurrence: None)
  Receive Date: 20120417
  Receipt Date: 20120130
  Transmission Date: 20120825
  Serious: No
  Sender: FDA-Public Use
  Company Number: US-BAUSCH-2012BL000600

PATIENT
  Age: 77 Year
  Sex: Female

DRUGS (1)
  1. LATANOPROST [Suspect]
     Indication: INTRAOCULAR PRESSURE INCREASED
     Route: 047
     Dates: start: 20120124

REACTIONS (3)
  - EYE PRURITUS [None]
  - EYE IRRITATION [None]
  - EYE SWELLING [None]
